FAERS Safety Report 6005620-9 (Version None)
Quarter: 2008Q4

REPORT INFORMATION
  Report Type: 
  Country: None (occurrence: None)
  Receive Date: 20081215
  Receipt Date: 20081202
  Transmission Date: 20090506
  Serious: Yes (Death, Hospitalization)
  Sender: FDA-Public Use
  Company Number: GXKR2008TR11514

PATIENT
  Age: 46 Year
  Sex: Male

DRUGS (8)
  1. PREDNISONE [Suspect]
     Indication: IMMUNOSUPPRESSANT DRUG THERAPY
     Dosage: 12 MG/KG/DAY
  2. THYMOGLOBULIN [Suspect]
     Indication: IMMUNOSUPPRESSANT DRUG THERAPY
  3. MYCOPHENOLATE MOFETIL [Concomitant]
  4. CYCLOSPORINE [Concomitant]
  5. ACYCLOVIR [Concomitant]
  6. FLUCONAZOLE [Concomitant]
  7. CO-TRIMOXAZOLE (CO-TRIMOXAZOLE) [Concomitant]
  8. GANCICLOVIR [Concomitant]

REACTIONS (11)
  - ASPERGILLOSIS [None]
  - BRONCHOALVEOLAR LAVAGE ABNORMAL [None]
  - CYTOMEGALOVIRUS INFECTION [None]
  - FUNGAL ABSCESS CENTRAL NERVOUS SYSTEM [None]
  - GENERAL PHYSICAL HEALTH DETERIORATION [None]
  - HEADACHE [None]
  - LOSS OF CONSCIOUSNESS [None]
  - NECROTISING RETINITIS [None]
  - PLEURAL EFFUSION [None]
  - UVEITIS [None]
  - VISUAL IMPAIRMENT [None]
